FAERS Safety Report 5601569-1 (Version None)
Quarter: 2008Q1

REPORT INFORMATION
  Report Type: 
  Country: None (occurrence: None)
  Receive Date: 20080124
  Receipt Date: 20080115
  Transmission Date: 20080703
  Serious: Yes (Death)
  Sender: FDA-Public Use
  Company Number: BR-JNJFOC-20080103403

PATIENT
  Age: 19 Year
  Sex: Female

DRUGS (4)
  1. TOPAMAX [Suspect]
     Indication: ANXIETY
     Route: 048
  2. TOPAMAX [Suspect]
     Indication: AFFECTIVE DISORDER
     Route: 048
  3. TOPAMAX [Suspect]
     Indication: EATING DISORDER
     Dosage: DOSE INCREASED 25 MG EVERY TWO WEEKS UNTIL THE DOSAGE WAS 200 MG DAILY
     Route: 048
  4. LEXAPRO [Concomitant]
     Route: 048

REACTIONS (4)
  - DEATH [None]
  - DIZZINESS [None]
  - EPILEPSY [None]
  - MALAISE [None]
